FAERS Safety Report 18788837 (Version 4)
Quarter: 2021Q2

REPORT INFORMATION
  Report Type: Spontaneous
  Country: DE (occurrence: DE)
  Receive Date: 20210126
  Receipt Date: 20210419
  Transmission Date: 20210717
  Serious: Yes (Hospitalization, Other)
  Sender: FDA-Public Use
  Company Number: DE-PFIZER INC-2021044302

PATIENT
  Sex: Male

DRUGS (13)
  1. TAFINLAR [Suspect]
     Active Substance: DABRAFENIB MESYLATE
     Dosage: 150 MG, 2X/DAY (1?0?1)
     Dates: start: 20201219, end: 20201223
  2. MEKINIST [Suspect]
     Active Substance: TRAMETINIB DIMETHYL SULFOXIDE
     Dosage: 2 MG, 1X/DAY (0?0?1)
     Dates: start: 20201222, end: 20201223
  3. MEKINIST [Suspect]
     Active Substance: TRAMETINIB DIMETHYL SULFOXIDE
     Dosage: 2 MG, 1X/DAY
     Dates: start: 202101
  4. BISOPROLOL [Concomitant]
     Active Substance: BISOPROLOL
     Indication: HYPERTENSION
     Dosage: 2.5 MG, 2X/DAY
  5. SPIRONOLACTONE. [Concomitant]
     Active Substance: SPIRONOLACTONE
     Dosage: 25 MG
  6. XARELTO [Concomitant]
     Active Substance: RIVAROXABAN
     Dosage: 20 MG, 1X/DAY (1?0?0)
  7. CANDESARTAN. [Concomitant]
     Active Substance: CANDESARTAN
     Indication: HYPERTENSION
     Dosage: UNK, 1X/DAY
  8. MEKINIST [Suspect]
     Active Substance: TRAMETINIB DIMETHYL SULFOXIDE
     Indication: METASTATIC MALIGNANT MELANOMA
     Dosage: 2 MG, 1X/DAY (0?0?1)
     Dates: start: 20201219, end: 202012
  9. TAFINLAR [Suspect]
     Active Substance: DABRAFENIB MESYLATE
     Indication: METASTATIC MALIGNANT MELANOMA
     Dosage: 150 MG, 2X/DAY (1?0?1)
     Dates: start: 20201230
  10. TAFINLAR [Suspect]
     Active Substance: DABRAFENIB MESYLATE
     Dosage: UNK
     Dates: start: 20201230
  11. MEKINIST [Suspect]
     Active Substance: TRAMETINIB DIMETHYL SULFOXIDE
     Dosage: 2 MG, 2X/DAY (1?0?1)
     Dates: start: 20210117
  12. MEKINIST [Suspect]
     Active Substance: TRAMETINIB DIMETHYL SULFOXIDE
     Dosage: 2 MG, 1X/DAY (1?0?0)
     Dates: start: 20201230, end: 20210117
  13. ATORVASTATIN CALCIUM. [Suspect]
     Active Substance: ATORVASTATIN CALCIUM
     Dosage: 20 MG, 1X/DAY (0?0?1)

REACTIONS (15)
  - Heart rate increased [Not Recovered/Not Resolved]
  - Restlessness [Unknown]
  - Nervousness [Unknown]
  - Pulse abnormal [Recovered/Resolved]
  - Arrhythmia [Unknown]
  - Stenosis [Unknown]
  - Palpitations [Unknown]
  - Bradycardia [Recovered/Resolved]
  - Atrial fibrillation [Not Recovered/Not Resolved]
  - Dyspnoea [Unknown]
  - Disease recurrence [Not Recovered/Not Resolved]
  - Chills [Recovered/Resolved]
  - Blood pressure abnormal [Unknown]
  - Electrocardiogram abnormal [Unknown]
  - Insomnia [Unknown]

NARRATIVE: CASE EVENT DATE: 202012
